FAERS Safety Report 6635721-3 (Version None)
Quarter: 2010Q1

REPORT INFORMATION
  Report Type: 
  Country: None (occurrence: None)
  Receive Date: 20100311
  Receipt Date: 20100311
  Transmission Date: 20100710
  Serious: Yes (Death, Life-Threatening, Hospitalization)
  Sender: FDA-Public Use
  Company Number: None

PATIENT
  Sex: Male

DRUGS (13)
  1. AMIODARONE HCL [Suspect]
     Indication: ATRIAL FIBRILLATION
     Dosage: 1MG/MIN X6 HR. 0.5MG/MIN X10H CONTINUOUS IV DRIP
     Route: 041
     Dates: start: 20091219, end: 20091220
  2. HYDRALAZINE HCL [Suspect]
     Indication: HYPERTENSION
     Dosage: 75MG THREE TIMES DAILY PO
     Route: 048
     Dates: start: 20091231, end: 20100101
  3. ASPIRIN [Concomitant]
  4. TYLENOL-500 [Concomitant]
  5. LIPITOR [Concomitant]
  6. PLAVIX [Concomitant]
  7. DIGOXIN [Concomitant]
  8. PEPCID [Concomitant]
  9. FENTANYL/MIDAZOLAM [Concomitant]
  10. LASIX [Concomitant]
  11. MERREM [Concomitant]
  12. VANCOMYCIN [Concomitant]
  13. METHYLPREDNISOLONE SODIUM SUCCINATE [Concomitant]

REACTIONS (7)
  - CARDIO-RESPIRATORY ARREST [None]
  - DOCUMENTED HYPERSENSITIVITY TO ADMINISTERED DRUG [None]
  - ELECTROMECHANICAL DISSOCIATION [None]
  - HYPOTENSION [None]
  - PULMONARY OEDEMA [None]
  - PULMONARY TOXICITY [None]
  - VENTRICULAR FIBRILLATION [None]
